FAERS Safety Report 11239556 (Version 1)
Quarter: 2015Q3

REPORT INFORMATION
  Report Type: Spontaneous
  Country: US (occurrence: US)
  Receive Date: 20150706
  Receipt Date: 20150706
  Transmission Date: 20151125
  Serious: No
  Sender: FDA-Public Use
  Company Number: US-PFIZER INC-2015217507

PATIENT
  Age: 55 Year
  Sex: Female

DRUGS (1)
  1. XALKORI [Suspect]
     Active Substance: CRIZOTINIB
     Indication: LUNG NEOPLASM MALIGNANT
     Dosage: 250 MG, 2X/DAY (1 CAPSULE BY MOUTH TWICE A DAY)
     Route: 048
     Dates: start: 20150521

REACTIONS (4)
  - Vomiting [Unknown]
  - Visual impairment [Unknown]
  - Nausea [Unknown]
  - Diarrhoea [Unknown]
